FAERS Safety Report 20188061 (Version 1)
Quarter: 2021Q4

REPORT INFORMATION
  Report Type: Spontaneous
  Country: US (occurrence: None)
  Receive Date: 20211215
  Receipt Date: 20211215
  Transmission Date: 20220303
  Serious: Yes (Disabling)
  Sender: FDA-Public Use
  Company Number: None

PATIENT
  Age: 43 Year
  Sex: Female
  Weight: 83.01 kg

DRUGS (1)
  1. MIRENA [Suspect]
     Active Substance: LEVONORGESTREL

REACTIONS (7)
  - Heavy menstrual bleeding [None]
  - Urinary tract infection [None]
  - Back pain [None]
  - Weight increased [None]
  - Inflammation [None]
  - Gait disturbance [None]
  - Dyspareunia [None]

NARRATIVE: CASE EVENT DATE: 20190906
